FAERS Safety Report 5496658-9 (Version None)
Quarter: 2007Q4

REPORT INFORMATION
  Report Type: 
  Country: None (occurrence: None)
  Receive Date: 20071025
  Receipt Date: 20070628
  Transmission Date: 20080405
  Serious: No
  Sender: FDA-Public Use
  Company Number: A0660734A

PATIENT
  Age: 68 Year
  Sex: Female

DRUGS (2)
  1. ADVAIR DISKUS 100/50 [Suspect]
     Dosage: 1PUFF TWICE PER DAY
     Route: 055
     Dates: start: 20040901
  2. AUGMENTIN '125' [Concomitant]

REACTIONS (3)
  - DYSPHONIA [None]
  - DYSPNOEA [None]
  - NASOPHARYNGITIS [None]
